FAERS Safety Report 9231299 (Version 2)
Quarter: 2013Q2

REPORT INFORMATION
  Report Type: Spontaneous
  Country: US (occurrence: US)
  Receive Date: 20130415
  Receipt Date: 20130513
  Transmission Date: 20140414
  Serious: Yes (Other)
  Sender: FDA-Public Use
  Company Number: US-PFIZER INC-2013113828

PATIENT
  Sex: Male

DRUGS (2)
  1. XANAX [Suspect]
     Dosage: UNK
  2. SEROQUEL [Suspect]
     Dosage: UNK

REACTIONS (9)
  - Suicide attempt [Unknown]
  - Suicidal ideation [Unknown]
  - Renal failure acute [Unknown]
  - Nervousness [Unknown]
  - Imprisonment [Unknown]
  - Bladder pain [Unknown]
  - Panic attack [Unknown]
  - Feelings of worthlessness [Unknown]
  - Weight increased [Unknown]
